FAERS Safety Report 6662375-2 (Version None)
Quarter: 2010Q1

REPORT INFORMATION
  Report Type: 
  Country: None (occurrence: None)
  Receive Date: 20100331
  Receipt Date: 20100326
  Transmission Date: 20100710
  Serious: Yes (Hospitalization)
  Sender: FDA-Public Use
  Company Number: US-ABBOTT-10P-163-0635038-00

PATIENT
  Sex: Male
  Weight: 93.07 kg

DRUGS (3)
  1. HUMIRA [Suspect]
     Indication: CROHN'S DISEASE
     Dates: start: 20090801, end: 20100201
  2. PREDNISONE [Concomitant]
     Indication: CROHN'S DISEASE
  3. LOMOTIL [Concomitant]
     Indication: DIARRHOEA

REACTIONS (3)
  - BALANCE DISORDER [None]
  - CEREBRAL DISORDER [None]
  - CONFUSIONAL STATE [None]
